FAERS Safety Report 8211644-3 (Version None)
Quarter: 2012Q1

REPORT INFORMATION
  Report Type: 
  Country: None (occurrence: None)
  Receive Date: 20120315
  Receipt Date: 20120312
  Transmission Date: 20120608
  Serious: No
  Sender: FDA-Public Use
  Company Number: US-PFIZER INC-2012006377

PATIENT
  Sex: Female
  Weight: 55.329 kg

DRUGS (3)
  1. LYRICA [Concomitant]
     Indication: FIBROMYALGIA
     Dosage: UNK
  2. PREMPRO [Suspect]
     Indication: HOT FLUSH
     Dosage: 3.5 MG, 1X/DAY
     Route: 048
     Dates: end: 20111201
  3. NORTRIPTYLINE [Concomitant]
     Indication: FATIGUE
     Dosage: UNK

REACTIONS (2)
  - CHILLS [None]
  - HOT FLUSH [None]
